FAERS Safety Report 25523774 (Version 1)
Quarter: 2025Q3

REPORT INFORMATION
  Report Type: Other
  Country: BH (occurrence: BH)
  Receive Date: 20250707
  Receipt Date: 20250707
  Transmission Date: 20251021
  Serious: Yes (Hospitalization, Other)
  Sender: DEXCEL LTD.
  Company Number: BH-DEXPHARM-2025-3718

PATIENT
  Age: 56 Year
  Sex: Female

DRUGS (3)
  1. ROSUVASTATIN [Interacting]
     Active Substance: ROSUVASTATIN
     Indication: Hypercholesterolaemia
  2. FUROSEMIDE [Interacting]
     Active Substance: FUROSEMIDE
  3. OMEPRAZOLE [Interacting]
     Active Substance: OMEPRAZOLE

REACTIONS (3)
  - Rhabdomyolysis [Recovered/Resolved]
  - Dermatomyositis [Recovered/Resolved]
  - Drug interaction [Recovered/Resolved]

NARRATIVE: CASE EVENT DATE: 20250101
